FAERS Safety Report 7083923-7 (Version None)
Quarter: 2010Q4

REPORT INFORMATION
  Report Type: 
  Country: None (occurrence: None)
  Receive Date: 20101104
  Receipt Date: 20100209
  Transmission Date: 20110411
  Serious: No
  Sender: FDA-Public Use
  Company Number: US-ABBOTT-10P-163-0625549-00

PATIENT
  Sex: Female
  Weight: 65.376 kg

DRUGS (2)
  1. KALETRA [Suspect]
     Indication: HIV INFECTION
     Dosage: AT BEDTIME
     Route: 048
     Dates: start: 20090701
  2. KALETRA [Suspect]
     Route: 048
     Dates: start: 20010101, end: 20090701

REACTIONS (5)
  - DECREASED APPETITE [None]
  - DIARRHOEA [None]
  - NASOPHARYNGITIS [None]
  - PAIN [None]
  - SINUS CONGESTION [None]
